FAERS Safety Report 11995632 (Version 1)
Quarter: 2016Q1

REPORT INFORMATION
  Report Type: Spontaneous
  Country: US (occurrence: US)
  Receive Date: 20160203
  Receipt Date: 20160203
  Transmission Date: 20160526
  Serious: Yes (Hospitalization)
  Sender: FDA-Public Use
  Company Number: US-RAPTOR-RAP-001009-2016

PATIENT
  Sex: Female

DRUGS (1)
  1. PROCYSBI DELAYED-RELEASE [Suspect]
     Active Substance: CYSTEAMINE BITARTRATE
     Indication: PRODUCT USED FOR UNKNOWN INDICATION
     Dosage: 900 MG, EVERY 12 HOURS
     Route: 048
     Dates: start: 20140331, end: 20150630

REACTIONS (2)
  - Feeling abnormal [Not Recovered/Not Resolved]
  - Suicidal ideation [Unknown]
